FAERS Safety Report 17245131 (Version 1)
Quarter: 2020Q1

REPORT INFORMATION
  Report Type: Spontaneous
  Country: US (occurrence: US)
  Receive Date: 20200108
  Receipt Date: 20200108
  Transmission Date: 20200409
  Serious: Yes (Death, Life-Threatening, Hospitalization)
  Sender: FDA-Public Use
  Company Number: US-TEVA-2020-US-1163131

PATIENT
  Age: 73 Year
  Sex: Male

DRUGS (6)
  1. CYCLOPHOSPHAMIDE. [Suspect]
     Active Substance: CYCLOPHOSPHAMIDE
     Indication: PROPHYLAXIS AGAINST GRAFT VERSUS HOST DISEASE
     Dosage: ON DAYS 3 AND 4 POST-TRANSPLANTATION
     Route: 065
  2. MYCOPHENOLATE MOFETIL. [Suspect]
     Active Substance: MYCOPHENOLATE MOFETIL
     Indication: IMMUNOSUPPRESSANT DRUG THERAPY
     Dosage: FROM DAY 5 AFTER TRANSPLANTATION
     Route: 065
  3. MELPHALAN. [Suspect]
     Active Substance: MELPHALAN
     Indication: BONE MARROW CONDITIONING REGIMEN
     Route: 065
  4. SIROLIMUS. [Suspect]
     Active Substance: SIROLIMUS
     Indication: IMMUNOSUPPRESSANT DRUG THERAPY
     Dosage: FROM DAY 5 AFTER TRANSPLANTATION
     Route: 065
  5. CEFPODOXIME [Suspect]
     Active Substance: CEFPODOXIME
     Indication: ANTIBIOTIC THERAPY
     Dosage: ON DAY 1 BEFORE TRANSPLANTATION
     Route: 048
  6. FLUDARABINE [Suspect]
     Active Substance: FLUDARABINE PHOSPHATE
     Indication: BONE MARROW CONDITIONING REGIMEN
     Route: 065

REACTIONS (5)
  - Sepsis [Fatal]
  - Febrile neutropenia [Unknown]
  - Escherichia infection [Fatal]
  - Hypoxia [Unknown]
  - Pathogen resistance [Fatal]
